FAERS Safety Report 7918839-4 (Version None)
Quarter: 2011Q4

REPORT INFORMATION
  Report Type: 
  Country: None (occurrence: None)
  Receive Date: 20111116
  Receipt Date: 20111107
  Transmission Date: 20120403
  Serious: Yes (Death, Hospitalization)
  Sender: FDA-Public Use
  Company Number: PHHY2011JP95135

PATIENT
  Age: 76 Year
  Sex: Male
  Weight: 64 kg

DRUGS (10)
  1. LIVACT [Concomitant]
     Indication: HYPOALBUMINAEMIA
     Dosage: UNK UKN, UNK
     Route: 048
  2. NEORAL [Suspect]
     Indication: APLASIA PURE RED CELL
     Dosage: 200 MG, DAILY (4 MG/KG/DAY)
     Route: 048
  3. BLOOD AND RELATED PRODUCTS [Concomitant]
     Dosage: UNK UKN, UNK
  4. CYTOTEC [Concomitant]
     Indication: INTESTINAL ULCER
     Dosage: UNK UKN, UNK
     Route: 048
  5. LEVOTHYROXINE SODIUM [Concomitant]
     Dosage: 75 UG/DAY
  6. STARASID [Suspect]
     Indication: NEOPLASM
     Dosage: 100 MG, DAILY
     Route: 048
  7. MEROPENEM [Suspect]
     Indication: PNEUMONIA
     Dosage: 2 G, DAILY
  8. AMINO ACID INJ [Concomitant]
     Indication: HYPOALBUMINAEMIA
     Dosage: UNK UKN, UNK
  9. HYDREA [Concomitant]
     Indication: NEOPLASM
     Dosage: UNK UKN, UNK
     Route: 048
  10. ALBUMIN NOS [Concomitant]
     Dosage: 50 ML, UNK

REACTIONS (37)
  - JAUNDICE [None]
  - CHRONIC MYELOID LEUKAEMIA [None]
  - WHITE BLOOD CELL COUNT INCREASED [None]
  - CACHEXIA [None]
  - BONE MARROW LEUKAEMIC CELL INFILTRATION [None]
  - BACK PAIN [None]
  - MASS [None]
  - LIVER INJURY [None]
  - BLOOD LACTATE DEHYDROGENASE INCREASED [None]
  - BLOOD ALBUMIN DECREASED [None]
  - ALANINE AMINOTRANSFERASE INCREASED [None]
  - AMMONIA INCREASED [None]
  - RESPIRATORY RATE DECREASED [None]
  - HAEMOSIDEROSIS [None]
  - INTESTINAL ULCER [None]
  - ASPARTATE AMINOTRANSFERASE INCREASED [None]
  - HYPOGLYCAEMIA [None]
  - METABOLIC DISORDER [None]
  - HAEMORRHAGE [None]
  - CHOLELITHIASIS [None]
  - PLATELET COUNT DECREASED [None]
  - DEPRESSED LEVEL OF CONSCIOUSNESS [None]
  - BRADYCARDIA [None]
  - LEUKAEMIC INFILTRATION HEPATIC [None]
  - OEDEMA [None]
  - EYELID OEDEMA [None]
  - HEPATIC ENCEPHALOPATHY [None]
  - ALTERED STATE OF CONSCIOUSNESS [None]
  - ANAEMIA [None]
  - HEPATIC FUNCTION ABNORMAL [None]
  - PNEUMONIA [None]
  - ASPERGILLOSIS [None]
  - PANCYTOPENIA [None]
  - FACE OEDEMA [None]
  - OSTEONECROSIS [None]
  - BLOOD ALKALINE PHOSPHATASE INCREASED [None]
  - BLOOD BETA-D-GLUCAN INCREASED [None]
